FAERS Safety Report 4844951-2 (Version None)
Quarter: 2005Q4

REPORT INFORMATION
  Report Type: 
  Country: None (occurrence: None)
  Receive Date: 20051128
  Receipt Date: 20051109
  Transmission Date: 20060501
  Serious: Yes (Life-Threatening, Hospitalization)
  Sender: FDA-Public Use
  Company Number: DSA_27418_2005

PATIENT
  Age: 46 Year
  Sex: Female

DRUGS (9)
  1. DILTIAZEM HCL [Suspect]
     Indication: TACHYCARDIA
     Dosage: 180 MG Q DAY PO
     Route: 048
     Dates: end: 20050704
  2. RANIPLEX [Suspect]
     Indication: JEJUNAL ULCER
     Dosage: 300 MG Q DAY PO
     Route: 048
     Dates: end: 20050704
  3. COLCHICINE [Concomitant]
  4. NEURONTIN [Concomitant]
  5. CORTANCYL [Concomitant]
  6. KLIPAL [Concomitant]
  7. METHOTREXATE [Concomitant]
  8. FOLIC ACID [Concomitant]
  9. INFLIXIMAB [Concomitant]

REACTIONS (4)
  - DYSPNOEA [None]
  - LOSS OF CONSCIOUSNESS [None]
  - MALAISE [None]
  - TORSADE DE POINTES [None]
